FAERS Safety Report 6154025-9 (Version None)
Quarter: 2009Q2

REPORT INFORMATION
  Report Type: 
  Country: None (occurrence: None)
  Receive Date: 20090414
  Receipt Date: 20090408
  Transmission Date: 20091009
  Serious: Yes (Hospitalization)
  Sender: FDA-Public Use
  Company Number: US-BRISTOL-MYERS SQUIBB COMPANY-14541270

PATIENT
  Age: 48 Year
  Sex: Female

DRUGS (6)
  1. IXEMPRA KIT [Suspect]
     Indication: INFLAMMATORY CARCINOMA OF THE BREAST
     Dosage: 40MG/M2. 1UPB
     Route: 040
     Dates: start: 20090220, end: 20090220
  2. IXEMPRA KIT [Suspect]
     Indication: BREAST CANCER METASTATIC
     Dosage: 40MG/M2. 1UPB
     Route: 040
     Dates: start: 20090220, end: 20090220
  3. CYTOXAN [Suspect]
     Indication: INFLAMMATORY CARCINOMA OF THE BREAST
     Dosage: 40MG/M2
  4. ADRIAMYCIN RDF [Suspect]
     Indication: INFLAMMATORY CARCINOMA OF THE BREAST
     Dosage: 40MG/M2
  5. TAXOTERE [Suspect]
     Indication: INFLAMMATORY CARCINOMA OF THE BREAST
     Dosage: 40MG/M2
  6. XELODA [Suspect]
     Indication: INFLAMMATORY CARCINOMA OF THE BREAST
     Dosage: 40MG/M2

REACTIONS (2)
  - HYPOTENSION [None]
  - SEPSIS [None]
